FAERS Safety Report 6706580-5 (Version None)
Quarter: 2010Q2

REPORT INFORMATION
  Report Type: 
  Country: None (occurrence: None)
  Receive Date: 20100429
  Receipt Date: 20100423
  Transmission Date: 20101027
  Serious: Yes (Hospitalization)
  Sender: FDA-Public Use
  Company Number: 003839

PATIENT
  Sex: Female
  Weight: 69.1 kg

DRUGS (3)
  1. CERTOLIZUMAB PEGOL [Suspect]
     Indication: RHEUMATOID ARTHRITIS
     Dosage: (400MG, 1X/2 WEEKS, FIRST THREE DOSES, SUBCUTANEOUS); 200 MG 1X/2 WEEKS
     Route: 058
     Dates: start: 20091118
  2. PREDNISONE [Concomitant]
  3. HYDROCODONE BITARTRATE [Concomitant]

REACTIONS (1)
  - LOBAR PNEUMONIA [None]
